FAERS Safety Report 5164900-X (Version None)
Quarter: 2006Q4

REPORT INFORMATION
  Report Type: 
  Country: None (occurrence: None)
  Receive Date: 20061124
  Receipt Date: 20061115
  Transmission Date: 20070319
  Serious: Yes (Hospitalization)
  Sender: FDA-Public Use
  Company Number: 8020284

PATIENT
  Age: 12 Year
  Sex: Female

DRUGS (1)
  1. THEOPHYLLINE [Suspect]
     Indication: ASTHMA
     Dosage: 300 MG

REACTIONS (16)
  - APHASIA [None]
  - ATELECTASIS [None]
  - CEREBRAL ATROPHY [None]
  - CLONIC CONVULSION [None]
  - DEPRESSED LEVEL OF CONSCIOUSNESS [None]
  - HEPATORENAL FAILURE [None]
  - HYPOTENSION [None]
  - INTERLEUKIN LEVEL INCREASED [None]
  - INTERLEUKIN-2 RECEPTOR INCREASED [None]
  - LEUKOPENIA [None]
  - NERVE INJURY [None]
  - PYREXIA [None]
  - SOMNOLENCE [None]
  - STATUS EPILEPTICUS [None]
  - THROMBOPHLEBITIS [None]
  - TONIC CONVULSION [None]
